FAERS Safety Report 8459495-9 (Version None)
Quarter: 2012Q2

REPORT INFORMATION
  Report Type: 
  Country: None (occurrence: None)
  Receive Date: 20120622
  Receipt Date: 20120612
  Transmission Date: 20120825
  Serious: Yes (Hospitalization)
  Sender: FDA-Public Use
  Company Number: US-ELI_LILLY_AND_COMPANY-US201204000126

PATIENT
  Sex: Female

DRUGS (9)
  1. VITAMIN D [Concomitant]
     Dosage: UNK, QD
  2. FORTEO [Suspect]
     Dosage: UNK, UNKNOWN
     Dates: start: 20120418, end: 20120531
  3. PAXIL [Concomitant]
     Dosage: 60 MG, QD
  4. ASPIRIN [Concomitant]
     Dosage: UNK, QD
  5. FORTEO [Suspect]
     Indication: OSTEOPOROSIS
     Dosage: 20 UG, QD
     Dates: start: 20120418, end: 20120531
  6. ATIVAN [Concomitant]
     Dosage: 2.5 MG, QD
  7. PRILOSEC [Concomitant]
     Dosage: UNK, QD
  8. TAMERAN [Concomitant]
     Dosage: 25 MG, QD
  9. CALCIUM [Concomitant]
     Dosage: 1200 MG, QD

REACTIONS (7)
  - ARTHRALGIA [None]
  - PNEUMONIA [None]
  - MALAISE [None]
  - LETHARGY [None]
  - PAIN IN EXTREMITY [None]
  - PALPITATIONS [None]
  - HEART RATE IRREGULAR [None]
